FAERS Safety Report 20645926 (Version 3)
Quarter: 2022Q4

REPORT INFORMATION
  Report Type: Report from Study
  Country: TH (occurrence: TH)
  Receive Date: 20220329
  Receipt Date: 20221017
  Transmission Date: 20230113
  Serious: Yes (Hospitalization)
  Sender: FDA-Public Use
  Company Number: TH-NOVARTISPH-NVSC2022TH068737

PATIENT
  Sex: Female

DRUGS (2)
  1. PIQRAY [Suspect]
     Active Substance: ALPELISIB
     Indication: Breast cancer metastatic
     Dosage: 300 MG, QD
     Route: 048
  2. PIQRAY [Suspect]
     Active Substance: ALPELISIB
     Dosage: (1 TABLET) 150 MG, QD
     Route: 048

REACTIONS (8)
  - Head injury [Unknown]
  - Anaemia [Unknown]
  - Blood glucose increased [Unknown]
  - Fall [Unknown]
  - Carbohydrate antigen 15-3 increased [Unknown]
  - Drug resistance [Unknown]
  - Drug ineffective [Unknown]
  - Therapy non-responder [Unknown]
